FAERS Safety Report 23973642 (Version 2)
Quarter: 2024Q3

REPORT INFORMATION
  Report Type: Spontaneous
  Country: JP (occurrence: JP)
  Receive Date: 20240613
  Receipt Date: 20240703
  Transmission Date: 20241017
  Serious: Yes (Hospitalization)
  Sender: TEVA
  Company Number: JP-TEVA-VS-3207523

PATIENT
  Age: 57 Year
  Sex: Female

DRUGS (4)
  1. PREDNISOLONE [Suspect]
     Active Substance: PREDNISOLONE
     Indication: Systemic lupus erythematosus
     Route: 065
  2. PREDNISOLONE [Suspect]
     Active Substance: PREDNISOLONE
     Indication: Systemic lupus erythematosus
     Route: 065
  3. Immunoglobulin [Concomitant]
     Indication: Central nervous system lupus
     Route: 042
  4. MYCOPHENOLATE MOFETIL [Suspect]
     Active Substance: MYCOPHENOLATE MOFETIL
     Indication: Systemic lupus erythematosus
     Route: 065

REACTIONS (6)
  - Rebound effect [Unknown]
  - Double stranded DNA antibody positive [Unknown]
  - Arthralgia [Unknown]
  - Total complement activity decreased [Unknown]
  - Progressive multifocal leukoencephalopathy [Recovered/Resolved]
  - Myalgia [Unknown]
